FAERS Safety Report 9575754 (Version 2)
Quarter: 2013Q4

REPORT INFORMATION
  Report Type: Spontaneous
  Country: US (occurrence: US)
  Receive Date: 20131001
  Receipt Date: 20131001
  Transmission Date: 20140711
  Serious: No
  Sender: FDA-Public Use
  Company Number: US-AMGEN-USASP2012045369

PATIENT
  Age: 64 Year
  Sex: Female

DRUGS (22)
  1. EPOGEN [Suspect]
     Indication: RENAL FAILURE CHRONIC
     Dosage: 4000 IU, UNK
  2. EPOGEN [Suspect]
     Dosage: 2000 IU, Q2WK
  3. EPOGEN [Suspect]
     Dosage: 3000 IU, Q2WK
  4. B12 [Concomitant]
     Dosage: 1 IU, QMO
  5. B12 [Concomitant]
     Dosage: 1 MG, UNK
  6. VITAMIN D [Concomitant]
     Dosage: UNK IU, UNK
  7. PRISTIQ [Concomitant]
     Dosage: 1 MG, QD
  8. ZETIA [Concomitant]
     Dosage: 1 MG, QD
  9. METOPROLOL [Concomitant]
     Dosage: 1 MG, QD
  10. TOPROL [Concomitant]
     Dosage: 1 MG, QD
  11. OMEPRAZOLE [Concomitant]
     Dosage: UNK
  12. FISH OIL [Concomitant]
     Dosage: UNK
  13. CALCITRIOL [Concomitant]
     Dosage: UNK
  14. CO-ENZIME Q-10 [Concomitant]
     Dosage: UNK
  15. TORSEMIDE [Concomitant]
     Dosage: UNK
  16. PLAVIX [Concomitant]
     Dosage: 1 MG, QD
  17. ALLOPURINOL [Concomitant]
     Dosage: 1 MG, QD
  18. NEURONTIN [Concomitant]
     Dosage: 1 MG, BID
  19. LEVOXYL [Concomitant]
     Dosage: 1 MUG, QD
  20. CITRACAL [Concomitant]
     Dosage: UNK
  21. MULTIVITAMIN [Concomitant]
     Dosage: UNK
  22. IRON [Concomitant]
     Dosage: UNK

REACTIONS (5)
  - Lethargy [Unknown]
  - Blood creatinine increased [Not Recovered/Not Resolved]
  - Renal impairment [Not Recovered/Not Resolved]
  - Anaemia [Unknown]
  - Asthenia [Unknown]
